FAERS Safety Report 17364204 (Version 20)
Quarter: 2021Q2

REPORT INFORMATION
  Report Type: Report from Study
  Country: FR (occurrence: FR)
  Receive Date: 20200204
  Receipt Date: 20210607
  Transmission Date: 20210716
  Serious: Yes (Congenital Anomaly, Other)
  Sender: FDA-Public Use
  Company Number: FR-AUROBINDO-AUR-APL-2020-004851

PATIENT
  Age: 7 Week
  Sex: Male
  Weight: 3.23 kg

DRUGS (24)
  1. NORVIR [Suspect]
     Active Substance: RITONAVIR
     Indication: HIV INFECTION
     Dosage: UNK, FIRST TRIMESTER (COURSE 2)
     Route: 064
     Dates: start: 20070510
  2. SUSTIVA [Suspect]
     Active Substance: EFAVIRENZ
     Dosage: UNK (COURSE NUMBER 2 )
     Route: 064
     Dates: start: 20070403, end: 20070510
  3. VIRACEPT [Suspect]
     Active Substance: NELFINAVIR MESYLATE
     Indication: HIV INFECTION
     Dosage: 250 MILLIGRAM, ONCE A DAY, FIRST TRIMESTER
     Route: 064
     Dates: start: 20070512, end: 20070612
  4. LAMIVUDINE. [Suspect]
     Active Substance: LAMIVUDINE
     Dosage: UNK (COURSE NUMBER 2)
     Route: 064
  5. ALUVIA [Suspect]
     Active Substance: LOPINAVIR\RITONAVIR
     Indication: HIV INFECTION
     Dosage: UNK (COARSE NUMBER 1)
     Route: 064
     Dates: start: 20070510
  6. EMTRIVA [Suspect]
     Active Substance: EMTRICITABINE
     Indication: HIV INFECTION
     Dosage: UNK COURSE 1
     Route: 064
     Dates: start: 20070403, end: 20070521
  7. KALETRA [Suspect]
     Active Substance: LOPINAVIR\RITONAVIR
     Dosage: UNK,
     Route: 064
     Dates: start: 20200510
  8. LOPINAVIR [Suspect]
     Active Substance: LOPINAVIR
     Indication: PRODUCT USED FOR UNKNOWN INDICATION
     Dosage: UNK
     Route: 064
     Dates: start: 20070510
  9. TENOFOVIR DISOPROXIL [Suspect]
     Active Substance: TENOFOVIR DISOPROXIL
     Indication: PRODUCT USED FOR UNKNOWN INDICATION
     Dosage: UNK, FIRST TRIMESTER, COURSE NUMBER 1
     Route: 064
     Dates: start: 20070403, end: 20070521
  10. NORVIR [Suspect]
     Active Substance: RITONAVIR
     Dosage: UNK
     Route: 064
     Dates: start: 20070512
  11. VIREAD [Suspect]
     Active Substance: TENOFOVIR DISOPROXIL FUMARATE
     Indication: HIV INFECTION
     Dosage: UNK, FIRST TRIMESTER (WEEK 1 TO 6)
     Route: 064
     Dates: start: 20070403, end: 20070521
  12. VIREAD [Suspect]
     Active Substance: TENOFOVIR DISOPROXIL FUMARATE
     Dosage: UNK
     Route: 064
  13. STOCRIN [Suspect]
     Active Substance: EFAVIRENZ
     Dosage: UNK, FIRST TRIMESTER (WEEK 1 TO 6)
     Route: 064
  14. RETROVIR [Suspect]
     Active Substance: ZIDOVUDINE
     Dosage: UNK (COURSE NUMBER 2)
     Route: 064
  15. VIRACEPT [Suspect]
     Active Substance: NELFINAVIR MESYLATE
     Dosage: UNK
     Route: 064
  16. LAMIVUDINE. [Suspect]
     Active Substance: LAMIVUDINE
     Indication: HIV INFECTION
     Dosage: UNK (COURSE NUMBER 1)
     Route: 064
     Dates: start: 20070512
  17. KALETRA [Suspect]
     Active Substance: LOPINAVIR\RITONAVIR
     Indication: HIV INFECTION
     Dosage: UNK, COARSE NUMBER 1
     Route: 064
     Dates: start: 20070510
  18. SUSTIVA [Suspect]
     Active Substance: EFAVIRENZ
     Indication: HIV INFECTION
     Dosage: UNK
     Route: 064
  19. ZEFFIX [Suspect]
     Active Substance: LAMIVUDINE
     Indication: HIV INFECTION
     Dosage: UNK (COURSE 1)
     Route: 064
     Dates: start: 20070512
  20. EMTRIVA [Suspect]
     Active Substance: EMTRICITABINE
     Indication: HIV INFECTION
     Dosage: UNK, FIRST TRIMESTER (WEEK 1 TO 8), COURSE NUMBER 1
     Route: 064
     Dates: start: 20070403, end: 20070521
  21. EMTRIVA [Suspect]
     Active Substance: EMTRICITABINE
     Indication: PRODUCT USED FOR UNKNOWN INDICATION
     Dosage: UNK
     Route: 064
  22. RETROVIR [Suspect]
     Active Substance: ZIDOVUDINE
     Indication: HIV INFECTION
     Dosage: UNK, FIRST TRIMESTER (COURSE NUMBER 1)
     Route: 064
     Dates: start: 20070521
  23. STOCRIN [Suspect]
     Active Substance: EFAVIRENZ
     Indication: HIV INFECTION
     Dosage: UNK (COURSE NUMBER 1)
     Route: 064
     Dates: start: 20070403, end: 20070510
  24. VIRACEPT [Suspect]
     Active Substance: NELFINAVIR MESYLATE
     Dosage: 250 DOSAGE FORM
     Route: 064

REACTIONS (2)
  - Hydrocele [Unknown]
  - Foetal exposure during pregnancy [Recovered/Resolved]

NARRATIVE: CASE EVENT DATE: 20070403
